FAERS Safety Report 6119547-5 (Version None)
Quarter: 2009Q1

REPORT INFORMATION
  Report Type: 
  Country: None (occurrence: None)
  Receive Date: 20090316
  Receipt Date: 20090311
  Transmission Date: 20090719
  Serious: Yes (Hospitalization)
  Sender: FDA-Public Use
  Company Number: B0554779A

PATIENT
  Age: 59 Year
  Sex: Female

DRUGS (5)
  1. CLAMOXYL [Suspect]
     Route: 048
     Dates: start: 20081114, end: 20081119
  2. ALLOPURINOL [Concomitant]
     Route: 048
     Dates: start: 20081010, end: 20081122
  3. ZESTRIL [Concomitant]
     Route: 048
     Dates: start: 20081010, end: 20081122
  4. GLUCOPHAGE [Concomitant]
     Route: 048
     Dates: start: 20081010, end: 20081122
  5. VASTEN [Concomitant]
     Route: 048
     Dates: start: 20081010, end: 20081122

REACTIONS (6)
  - CHOLESTATIC LIVER INJURY [None]
  - DERMATITIS EXFOLIATIVE [None]
  - ECZEMA [None]
  - HEPATITIS [None]
  - PYREXIA [None]
  - TOXIC SKIN ERUPTION [None]
